FAERS Safety Report 8561519-5 (Version None)
Quarter: 2012Q3

REPORT INFORMATION
  Report Type: 
  Country: None (occurrence: None)
  Receive Date: 20120802
  Receipt Date: 20120724
  Transmission Date: 20120928
  Serious: Yes (Other)
  Sender: FDA-Public Use
  Company Number: JP-JNJFOC-20120601988

PATIENT
  Sex: Male
  Weight: 90 kg

DRUGS (4)
  1. REMICADE [Suspect]
     Route: 042
     Dates: start: 20060317
  2. REMICADE [Suspect]
     Route: 042
     Dates: start: 20110629
  3. PREDNISOLONE [Suspect]
     Indication: CROHN'S DISEASE
     Route: 048
     Dates: start: 20050101, end: 20120401
  4. REMICADE [Suspect]
     Indication: CROHN'S DISEASE
     Route: 042
     Dates: start: 20120404

REACTIONS (2)
  - PNEUMONIA [None]
  - CROHN'S DISEASE [None]
